FAERS Safety Report 9355146 (Version 2)
Quarter: 2014Q1

REPORT INFORMATION
  Report Type: Report from Study
  Country: US (occurrence: US)
  Receive Date: 20130619
  Receipt Date: 20140305
  Transmission Date: 20141002
  Serious: Yes (Other)
  Sender: FDA-Public Use
  Company Number: PHEH2013US012955

PATIENT
  Age: 19 Year
  Sex: Male

DRUGS (11)
  1. AFINITOR [Suspect]
     Indication: ANGIOMYOLIPOMA
     Dosage: 5 MG, DAILY
     Route: 048
     Dates: start: 20120927
  2. AFINITOR [Suspect]
     Dosage: 7.5 MG, DAILY
     Route: 048
  3. LAMICTAL [Concomitant]
  4. SABRIL [Concomitant]
  5. TOPAMAX [Concomitant]
  6. VIGABATRIN [Concomitant]
  7. CALCIUM [Concomitant]
  8. VITAMIN D [Concomitant]
     Dosage: UNK
  9. MELATONIN [Concomitant]
  10. TURMERIC [Concomitant]
  11. ZYRTEC [Concomitant]

REACTIONS (3)
  - Bladder disorder [Unknown]
  - Incontinence [Not Recovered/Not Resolved]
  - Nephrolithiasis [Not Recovered/Not Resolved]
